FAERS Safety Report 7078264-8 (Version None)
Quarter: 2010Q4

REPORT INFORMATION
  Report Type: 
  Country: None (occurrence: None)
  Receive Date: 20101101
  Receipt Date: 20101101
  Transmission Date: 20110411
  Serious: No
  Sender: FDA-Public Use
  Company Number: None

PATIENT
  Sex: Female

DRUGS (1)
  1. SUTENT [Suspect]
     Dosage: 25 MG PO TAKE 1 CAPSULE BY MOUTH  EVERY DAY
     Route: 048

REACTIONS (2)
  - BLOOD SODIUM DECREASED [None]
  - MULTIPLE SCLEROSIS [None]
